FAERS Safety Report 16025546 (Version 1)
Quarter: 2019Q1

REPORT INFORMATION
  Report Type: Spontaneous
  Country: KR (occurrence: KR)
  Receive Date: 20190302
  Receipt Date: 20190302
  Transmission Date: 20190418
  Serious: Yes (Hospitalization, Other)
  Sender: FDA-Public Use
  Company Number: KR-009507513-1902KOR011552

PATIENT
  Sex: Male

DRUGS (29)
  1. LIDOCAINE HYDROCHLORIDE. [Concomitant]
     Active Substance: LIDOCAINE HYDROCHLORIDE
     Dosage: QUANTITY 1 DAY 1
     Dates: start: 20190211, end: 20190211
  2. OLIMEL N4E [Concomitant]
     Dosage: QUANTITY 1 DAYS 9
     Dates: start: 20190129, end: 20190211
  3. OLIMEL N4E [Concomitant]
     Dosage: QUANTITY 1 DAYS 2
     Dates: start: 20190212, end: 20190215
  4. BC MORPHINE SULFATE [Concomitant]
     Dosage: QUANTITY 1 DAYS 12
     Dates: start: 20190128, end: 20190215
  5. SODIUM CHLORIDE. [Concomitant]
     Active Substance: SODIUM CHLORIDE
     Dosage: QUANTITY 1 DAYS 13
     Dates: start: 20190130, end: 20190211
  6. MORPHINE HYDROCHLORIDE [Concomitant]
     Active Substance: MORPHINE HYDROCHLORIDE
     Dosage: QUANTITY 2 DAYS 2
     Dates: start: 20190127, end: 20190128
  7. SODIUM CHLORIDE. [Concomitant]
     Active Substance: SODIUM CHLORIDE
     Dosage: QUANTITY 1 DAYS 3
     Dates: start: 20190130, end: 20190215
  8. KEYTRUDA [Suspect]
     Active Substance: PEMBROLIZUMAB
     Dosage: QUANTITY:2, DAY:1
     Dates: start: 20190208, end: 20190208
  9. WATER, DISTILLED [Concomitant]
     Dosage: QUANTITY 1 DAY 1
     Dates: start: 20190201, end: 20190201
  10. WATER, DISTILLED [Concomitant]
     Dosage: QUANTITY 1 DAY 1
     Dates: start: 20190211, end: 20190211
  11. PERDIPINE [Concomitant]
     Active Substance: NICARDIPINE HYDROCHLORIDE
     Dosage: QUANTITY 1 DAY 1
     Dates: start: 20190208, end: 20190208
  12. STERILE WATER [Concomitant]
     Active Substance: WATER
     Dosage: QUANTITY 1, DAYS 2
     Dates: start: 20190212, end: 20190215
  13. EPINEPHRINE. [Concomitant]
     Active Substance: EPINEPHRINE
     Dosage: QUANTITY 1, DAY 1
     Dates: start: 20190201, end: 20190201
  14. MECKOOL [Concomitant]
     Dosage: QUANTITY 1 DAYS 6
     Dates: start: 20190128, end: 20190212
  15. FENTANYL CITRATE HANA [Concomitant]
     Dosage: QUANTITY 1 DAY 1
     Dates: start: 20190201, end: 20190201
  16. MORPHINE HYDROCHLORIDE [Concomitant]
     Active Substance: MORPHINE HYDROCHLORIDE
     Dosage: QUANTITY 1 DAYS 7
     Dates: start: 20190129, end: 20190211
  17. SODIUM CHLORIDE. [Concomitant]
     Active Substance: SODIUM CHLORIDE
     Dosage: QUANTITY 1 DAYS 5
     Dates: start: 20190131, end: 20190211
  18. STERILE WATER [Concomitant]
     Active Substance: WATER
     Dosage: QUANTITY 1, DAYS 9
     Dates: start: 20190129, end: 20190211
  19. MORPHINE HYDROCHLORIDE [Concomitant]
     Active Substance: MORPHINE HYDROCHLORIDE
     Dosage: QUANTITY 1 DAYS 3
     Dates: start: 20190130, end: 20190215
  20. SODIUM CHLORIDE. [Concomitant]
     Active Substance: SODIUM CHLORIDE
     Dosage: QUANTITY 1 DAYS 2
     Dates: start: 20190127, end: 20190128
  21. SODIUM CHLORIDE. [Concomitant]
     Active Substance: SODIUM CHLORIDE
     Dosage: QUANTITY 1 DAY 1
     Dates: start: 20190208, end: 20190208
  22. MUTERAN [Concomitant]
     Active Substance: ACETYLCYSTEINE
     Dosage: QUANTITY 2 DAY1, QUANTITY 4 DAY 1
     Dates: start: 20190214, end: 20190214
  23. PENIRAMIN [Concomitant]
     Dosage: QUANTITY 1 DAYS 3
     Dates: start: 20190130, end: 20190214
  24. MIDAZOLAM BUKWANG [Concomitant]
     Dosage: QUANTITY 1 DAY 1
     Dates: start: 20190201, end: 20190201
  25. OLIMEL N4E [Concomitant]
     Dosage: QUANTITY 1 DAY 1
     Dates: start: 20190127, end: 20190128
  26. CORTISOLU [Concomitant]
     Active Substance: HYDROCORTISONE SODIUM SUCCINATE
     Dosage: QUANTITY 1 DAYS 3
     Dates: start: 20190129, end: 20190214
  27. SODIUM CHLORIDE. [Concomitant]
     Active Substance: SODIUM CHLORIDE
     Dosage: QUANTITY 1 DAYS 5
     Dates: start: 20190129, end: 20190215
  28. LIDOCAINE HYDROCHLORIDE. [Concomitant]
     Active Substance: LIDOCAINE HYDROCHLORIDE
     Dosage: QUANTITY 1 DAY 1
     Dates: start: 20190201, end: 20190201
  29. CORTISOLU [Concomitant]
     Active Substance: HYDROCORTISONE SODIUM SUCCINATE
     Dosage: QUANTITY 1 DAY 1
     Dates: start: 20190130, end: 20190130

REACTIONS (3)
  - Acute kidney injury [Unknown]
  - Radiation pneumonitis [Unknown]
  - Lung carcinoma cell type unspecified stage 0 [Unknown]

NARRATIVE: CASE EVENT DATE: 20190215
